FAERS Safety Report 7570929-4 (Version None)
Quarter: 2011Q2

REPORT INFORMATION
  Report Type: 
  Country: None (occurrence: None)
  Receive Date: 20110624
  Receipt Date: 20110610
  Transmission Date: 20111010
  Serious: Yes (Death, Other)
  Sender: FDA-Public Use
  Company Number: US-ENDO PHARMACEUTICALS INC.-OPIR20110032

PATIENT
  Age: 17 Year
  Sex: Male

DRUGS (4)
  1. XANAX [Suspect]
     Indication: DRUG ABUSE
     Dosage: UNK
  2. HEROIN [Suspect]
     Indication: DRUG ABUSE
     Dosage: UNK
  3. OPANA [Suspect]
     Indication: DRUG ABUSE
     Dosage: UNK
     Route: 048
  4. OPANA [Suspect]
     Dosage: UNK

REACTIONS (5)
  - DRUG DIVERSION [None]
  - WRONG TECHNIQUE IN DRUG USAGE PROCESS [None]
  - DRUG ABUSE [None]
  - INCORRECT ROUTE OF DRUG ADMINISTRATION [None]
  - OVERDOSE [None]
